FAERS Safety Report 5290630-X (Version None)
Quarter: 2007Q2

REPORT INFORMATION
  Report Type: 
  Country: None (occurrence: None)
  Receive Date: 20070402
  Receipt Date: 20070327
  Transmission Date: 20071010
  Serious: Yes (Life-Threatening, Hospitalization)
  Sender: FDA-Public Use
  Company Number: 2007-156448-NL

PATIENT
  Age: 84 Year
  Sex: Male

DRUGS (9)
  1. MIRTAZAPINE [Suspect]
     Indication: PRURITUS
     Dosage: ORAL
     Route: 048
     Dates: start: 20070115, end: 20070220
  2. ALPHADERM [Concomitant]
  3. ACETYLSALICYLIC ACID SRT [Concomitant]
  4. BETAMETHASONE [Concomitant]
  5. CLOBETASOL PROPIONATE [Concomitant]
  6. DIPYRIDAMOLE [Concomitant]
  7. HYDROXOCOBALAMIN [Concomitant]
  8. INDAPAMIDE [Concomitant]
  9. PERINDOPRIL ERBUMINE [Concomitant]

REACTIONS (3)
  - FLUID INTAKE REDUCED [None]
  - LETHARGY [None]
  - RENAL FAILURE [None]
